FAERS Safety Report 6205633-8 (Version None)
Quarter: 2009Q2

REPORT INFORMATION
  Report Type: 
  Country: None (occurrence: None)
  Receive Date: 20090527
  Receipt Date: 20090409
  Transmission Date: 20091009
  Serious: No
  Sender: FDA-Public Use
  Company Number: US-ABBOTT-09P-163-0567483-00

PATIENT
  Sex: Male

DRUGS (2)
  1. SIMCOR [Suspect]
     Indication: UNEVALUABLE EVENT
     Dosage: 1 PILL AT NIGHT (WIFE DID NOT KNOW DOSE)
  2. PATIENT TAKES OTHER MEDS, WIFE DIDN'T KNOW NAMES NOR DID SHE WANT TO G [Concomitant]
     Indication: DRUG USE FOR UNKNOWN INDICATION

REACTIONS (1)
  - BLOOD GLUCOSE INCREASED [None]
